FAERS Safety Report 9218266 (Version 2)
Quarter: 2013Q2

REPORT INFORMATION
  Report Type: Report from Study
  Country: BR (occurrence: BR)
  Receive Date: 20130409
  Receipt Date: 20130509
  Transmission Date: 20140414
  Serious: Yes (Hospitalization, Other)
  Sender: FDA-Public Use
  Company Number: BR-AMGEN-BRACT2012032989

PATIENT
  Age: 42 Year
  Sex: Female
  Weight: 56 kg

DRUGS (7)
  1. ETANERCEPT [Suspect]
     Indication: ANKYLOSING SPONDYLITIS
     Dosage: 50 MG, QWK
     Route: 058
     Dates: start: 201109, end: 201205
  2. ETANERCEPT [Suspect]
     Indication: SPONDYLITIS
     Dosage: UNK
  3. MAREVAN [Concomitant]
     Indication: ANTIPHOSPHOLIPID SYNDROME
     Dosage: 5 MG, UNK
  4. LYRICA [Concomitant]
     Indication: PAIN
     Dosage: 75 MG, UNK
  5. BUPROPION [Concomitant]
     Indication: ANTIDEPRESSANT THERAPY
     Dosage: 150 MG, UNK
  6. DEFLAZACORT [Concomitant]
     Dosage: 15 MG, UNK
  7. VITAMIN E                          /00110501/ [Concomitant]
     Dosage: UNK

REACTIONS (7)
  - Burning sensation [Not Recovered/Not Resolved]
  - Chemotherapy [Unknown]
  - Needle issue [Unknown]
  - Autoimmune hepatitis [Unknown]
  - Urinary tract infection [Unknown]
  - Injection site discomfort [Unknown]
  - Injection site pain [Unknown]
